FAERS Safety Report 20174240 (Version 2)
Quarter: 2022Q1

REPORT INFORMATION
  Report Type: Spontaneous
  Country: JP (occurrence: JP)
  Receive Date: 20211213
  Receipt Date: 20220225
  Transmission Date: 20220423
  Serious: Yes (Death, Other)
  Sender: FDA-Public Use
  Company Number: JP-ONO-2021JP028353

PATIENT
  Age: 72 Year
  Sex: Male
  Weight: 42.2 kg

DRUGS (1)
  1. OPDIVO [Suspect]
     Active Substance: NIVOLUMAB
     Indication: Oesophageal carcinoma
     Dosage: 240 MILLIGRAM
     Route: 041
     Dates: start: 20211102, end: 20211102

REACTIONS (2)
  - Malignant neoplasm progression [Fatal]
  - Upper gastrointestinal perforation [Fatal]

NARRATIVE: CASE EVENT DATE: 20211105
